FAERS Safety Report 14910519 (Version 2)
Quarter: 2018Q2

REPORT INFORMATION
  Report Type: Spontaneous
  Country: US (occurrence: US)
  Receive Date: 20180517
  Receipt Date: 20180608
  Transmission Date: 20180711
  Serious: Yes (Other)
  Sender: FDA-Public Use
  Company Number: US-009507513-1805USA004701

PATIENT
  Age: 22 Year
  Sex: Female
  Weight: 73.02 kg

DRUGS (1)
  1. NEXPLANON [Suspect]
     Active Substance: ETONOGESTREL
     Indication: CONTRACEPTION
     Dosage: 1 IMPLANT, UNK
     Route: 059
     Dates: start: 20150608, end: 20180503

REACTIONS (3)
  - Abortion spontaneous [Recovering/Resolving]
  - Unintended pregnancy [Recovered/Resolved]
  - Pregnancy with implant contraceptive [Recovered/Resolved]

NARRATIVE: CASE EVENT DATE: 20180427
